FAERS Safety Report 6167399-X (Version None)
Quarter: 2009Q2

REPORT INFORMATION
  Report Type: 
  Country: None (occurrence: None)
  Receive Date: 20090424
  Receipt Date: 20090410
  Transmission Date: 20091009
  Serious: Yes (Other)
  Sender: FDA-Public Use
  Company Number: PL-CELGENEUS-129-20785-09041653

PATIENT

DRUGS (4)
  1. THALOMID [Suspect]
     Route: 048
  2. FLUDARABINE PHOSPHATE [Suspect]
     Route: 051
  3. FLUDARABINE PHOSPHATE [Suspect]
     Route: 048
  4. ACETYLSALICYLIC ACID [Concomitant]
     Indication: PROPHYLAXIS
     Route: 065

REACTIONS (7)
  - ANAEMIA HAEMOLYTIC AUTOIMMUNE [None]
  - CONSTIPATION [None]
  - FATIGUE [None]
  - INFECTION [None]
  - NEUTROPENIA [None]
  - THROMBOCYTOPENIA [None]
  - TUMOUR FLARE [None]
